FAERS Safety Report 14562203 (Version 1)
Quarter: 2018Q1

REPORT INFORMATION
  Report Type: Spontaneous
  Country: ZA (occurrence: ZA)
  Receive Date: 20180222
  Receipt Date: 20180222
  Transmission Date: 20180509
  Serious: Yes (Hospitalization)
  Sender: FDA-Public Use
  Company Number: ZA-MYLANLABS-2018M1011994

PATIENT
  Age: 62 Year
  Sex: Male

DRUGS (7)
  1. MYLAN FUROSEMIDE 40 [Suspect]
     Active Substance: FUROSEMIDE
     Indication: DIURETIC THERAPY
     Dosage: 40 MG, UNK
     Route: 048
  2. PEARINDA [Concomitant]
     Active Substance: PERINDOPRIL ERBUMINE
     Indication: HYPERTENSION
     Dosage: 8 MG, UNK
     Route: 048
  3. FEDALOC SR [Concomitant]
     Indication: HYPERTENSION
     Dosage: 60 MG, UNK
     Route: 048
  4. FEDALOC SR [Concomitant]
     Dosage: 30 MG, UNK
  5. CARZIN XL [Concomitant]
     Active Substance: DOXAZOSIN MESYLATE
     Indication: PROSTATIC DISORDER
     Dosage: 4 MG, UNK
     Route: 048
  6. DISPRIN CARDIOCARE [Concomitant]
     Active Substance: ASPIRIN
     Indication: ANTICOAGULANT THERAPY
     Dosage: 100 MG, UNK
     Route: 048
  7. ONE ALPHA [Concomitant]
     Active Substance: ALFACALCIDOL
     Indication: HYPOVITAMINOSIS
     Dosage: 1 ?G, UNK
     Route: 048

REACTIONS (1)
  - Hypertension [Unknown]
